FAERS Safety Report 6357041-7 (Version None)
Quarter: 2009Q3

REPORT INFORMATION
  Report Type: 
  Country: None (occurrence: None)
  Receive Date: 20090915
  Receipt Date: 20090728
  Transmission Date: 20100115
  Serious: No
  Sender: FDA-Public Use
  Company Number: US-ABBOTT-09P-163-0588186-00

PATIENT
  Sex: Female
  Weight: 70.37 kg

DRUGS (5)
  1. DEPAKOTE [Suspect]
     Indication: CONVULSION
     Dosage: 4 - 125 MILLIGRAMS THREE TIMES A DAY
     Dates: start: 20090101, end: 20090601
  2. DEPAKOTE [Suspect]
     Dosage: 3 - 125 MILLIGRAMS THREE TIMES A DAY
     Dates: end: 20090101
  3. DIVALPROEX SODIUM [Suspect]
     Indication: DRUG USE FOR UNKNOWN INDICATION
     Dosage: 5 - 125 MILLIGRAMS THREE TIMES DAILY
     Dates: start: 20090601
  4. FOLIC ACID [Concomitant]
     Indication: DRUG USE FOR UNKNOWN INDICATION
  5. ASPIRIN [Concomitant]
     Indication: DRUG USE FOR UNKNOWN INDICATION

REACTIONS (1)
  - CONVULSION [None]
